FAERS Safety Report 9933491 (Version 2)
Quarter: 2014Q1

REPORT INFORMATION
  Report Type: Report from Study
  Country: US (occurrence: US)
  Receive Date: 20140228
  Receipt Date: 20140228
  Transmission Date: 20141002
  Serious: No
  Sender: FDA-Public Use
  Company Number: US-MYLANLABS-2013S1010270

PATIENT
  Age: 15 Year
  Sex: Male

DRUGS (6)
  1. CLARAVIS [Suspect]
     Indication: ACNE CYSTIC
     Route: 048
     Dates: start: 20121227, end: 2013
  2. CLARAVIS [Suspect]
     Indication: ACNE
     Route: 048
     Dates: start: 20121227, end: 2013
  3. AMNESTEEM CAPSULES [Suspect]
     Indication: ACNE CYSTIC
     Route: 048
     Dates: start: 2013, end: 2013
  4. AMNESTEEM CAPSULES [Suspect]
     Indication: ACNE
     Route: 048
     Dates: start: 2013, end: 2013
  5. AMNESTEEM CAPSULES [Suspect]
     Indication: ACNE CYSTIC
     Route: 048
     Dates: end: 20130404
  6. AMNESTEEM CAPSULES [Suspect]
     Indication: ACNE
     Route: 048
     Dates: end: 20130404

REACTIONS (2)
  - Irritability [Recovered/Resolved]
  - Mood swings [Recovered/Resolved]
